FAERS Safety Report 10486352 (Version 2)
Quarter: 2014Q4

REPORT INFORMATION
  Report Type: Spontaneous
  Country: BE (occurrence: BE)
  Receive Date: 20141001
  Receipt Date: 20141001
  Transmission Date: 20150528
  Serious: Yes (Other)
  Sender: FDA-Public Use
  Company Number: BE-ASTRAZENECA-2014SE66143

PATIENT
  Age: 74 Year
  Sex: Male
  Weight: 80 kg

DRUGS (9)
  1. BISOPROLOL [Concomitant]
     Active Substance: BISOPROLOL
     Dosage: 2.5 MG, 1/2 PER DAY
  2. ZANIDIP [Concomitant]
     Active Substance: LERCANIDIPINE HYDROCHLORIDE
     Dosage: 20MG, 1/2 PER DAY
  3. TRITACE [Concomitant]
     Active Substance: RAMIPRIL
  4. ATORVASTATINE [Concomitant]
     Active Substance: ATORVASTATIN
  5. PANTOMED [Concomitant]
     Active Substance: DEXPANTHENOL
  6. METFORMIN [Concomitant]
     Active Substance: METFORMIN HYDROCHLORIDE
  7. BRILIQUE [Suspect]
     Active Substance: TICAGRELOR
     Indication: ACUTE CORONARY SYNDROME
     Route: 048
     Dates: start: 20140813
  8. ASAFLOW [Concomitant]
     Active Substance: ASPIRIN
  9. UNI DIAMICRON [Concomitant]
     Active Substance: GLICLAZIDE
     Dosage: 60MG, 1/2 PER DAY

REACTIONS (2)
  - Dyspnoea [Recovering/Resolving]
  - Insomnia [Recovering/Resolving]

NARRATIVE: CASE EVENT DATE: 20140813
